FAERS Safety Report 7860167-X (Version None)
Quarter: 2011Q4

REPORT INFORMATION
  Report Type: 
  Country: None (occurrence: None)
  Receive Date: 20111027
  Receipt Date: 20111020
  Transmission Date: 20120403
  Serious: No
  Sender: FDA-Public Use
  Company Number: US-B.I. PHARMACEUTICALS,INC./RIDGEFIELD-2011-BP-24711BP

PATIENT
  Sex: Male

DRUGS (2)
  1. PRADAXA [Suspect]
     Indication: ATRIAL FIBRILLATION
     Dosage: 300 MG
     Route: 048
     Dates: start: 20110720
  2. MEDICATION NOT FURTHER SPECIFIED [Concomitant]

REACTIONS (4)
  - DYSPEPSIA [None]
  - CONTUSION [None]
  - FLATULENCE [None]
  - DIARRHOEA [None]
